FAERS Safety Report 6202609-1 (Version None)
Quarter: 2009Q2

REPORT INFORMATION
  Report Type: 
  Country: None (occurrence: None)
  Receive Date: 20090521
  Receipt Date: 20090521
  Transmission Date: 20091009
  Serious: Yes (Life-Threatening)
  Sender: FDA-Public Use
  Company Number: None

PATIENT
  Sex: Female
  Weight: 74.8435 kg

DRUGS (1)
  1. LAMOTRIGINE [Suspect]
     Indication: CONVULSION
     Dosage: 200 MG 2 TIMES A DAY PO
     Route: 048
     Dates: start: 20081015, end: 20081212

REACTIONS (5)
  - ANKLE FRACTURE [None]
  - CONVULSION [None]
  - FALL [None]
  - HEAD INJURY [None]
  - PRODUCT SUBSTITUTION ISSUE [None]
